FAERS Safety Report 22320099 (Version 1)
Quarter: 2023Q2

REPORT INFORMATION
  Report Type: Spontaneous
  Country: FR (occurrence: FR)
  Receive Date: 20230515
  Receipt Date: 20230515
  Transmission Date: 20230721
  Serious: Yes (Other)
  Sender: FDA-Public Use
  Company Number: None

PATIENT
  Age: 30 Year
  Sex: Female
  Weight: 52 kg

DRUGS (2)
  1. SILDENAFIL [Suspect]
     Active Substance: SILDENAFIL
     Indication: Weight decreased
     Dosage: 1 DOSAGE FORMS DAILY;
     Route: 065
     Dates: start: 20221020
  2. SIBUTRAMINE HYDROCHLORIDE MONOHYDRATE [Suspect]
     Active Substance: SIBUTRAMINE HYDROCHLORIDE
     Indication: Weight decreased
     Dosage: 1 DOSAGE FORMS DAILY;
     Route: 065
     Dates: start: 20221020

REACTIONS (5)
  - Sleep disorder [Unknown]
  - Headache [Unknown]
  - Asthenia [Unknown]
  - Tremor [Unknown]
  - Palpitations [Unknown]

NARRATIVE: CASE EVENT DATE: 20221030
